FAERS Safety Report 13527719 (Version 2)
Quarter: 2017Q3

REPORT INFORMATION
  Report Type: Spontaneous
  Country: FR (occurrence: FR)
  Receive Date: 20170509
  Receipt Date: 20170911
  Transmission Date: 20171127
  Serious: Yes (Death, Life-Threatening, Other)
  Sender: FDA-Public Use
  Company Number: FR-TELIGENT, INC-IGIL20170194

PATIENT
  Age: 58 Year
  Sex: Male

DRUGS (7)
  1. ETOMIDATE LIPURO [Suspect]
     Active Substance: ETOMIDATE
     Indication: GENERAL ANAESTHESIA
     Dosage: 40 MG DAILY
     Route: 042
     Dates: start: 20170425, end: 20170425
  2. FEIBA [Suspect]
     Active Substance: ANTI-INHIBITOR COAGULANT COMPLEX
     Dosage: UNKNOWN
     Route: 042
     Dates: start: 20170425, end: 20170425
  3. CEFUROXIME SODIUM. [Suspect]
     Active Substance: CEFUROXIME SODIUM
     Indication: ANTIBIOTIC PROPHYLAXIS
     Dosage: 3 G DAILY
     Route: 042
     Dates: start: 20170425, end: 20170425
  4. FEIBA [Suspect]
     Active Substance: ANTI-INHIBITOR COAGULANT COMPLEX
     Indication: HAEMORRHAGE PROPHYLAXIS
     Dosage: 1000 IU DAILY
     Route: 042
     Dates: start: 20170425, end: 20170425
  5. ESMERON [Suspect]
     Active Substance: ROCURONIUM BROMIDE
     Indication: GENERAL ANAESTHESIA
     Dosage: 100 MG DAILY
     Route: 042
     Dates: start: 20170425, end: 20170425
  6. ELIQUIS [Concomitant]
     Indication: PRODUCT USED FOR UNKNOWN INDICATION
     Dosage: UNKNOWN
     Route: 065
  7. SEVOFLURANE. [Suspect]
     Active Substance: SEVOFLURANE
     Indication: GENERAL ANAESTHESIA
     Dates: start: 20170425, end: 20170425

REACTIONS (9)
  - Haemodynamic instability [Unknown]
  - Multiple organ dysfunction syndrome [Fatal]
  - Cardio-respiratory arrest [Unknown]
  - Haemorrhage [Unknown]
  - Hepatic failure [Unknown]
  - Renal failure [Unknown]
  - Intestinal ischaemia [Unknown]
  - Septic shock [Unknown]
  - Oxygen saturation decreased [Recovering/Resolving]

NARRATIVE: CASE EVENT DATE: 20170425
